FAERS Safety Report 16975301 (Version 1)
Quarter: 2019Q4

REPORT INFORMATION
  Report Type: Spontaneous
  Country: US (occurrence: US)
  Receive Date: 20191029
  Receipt Date: 20191029
  Transmission Date: 20200122
  Serious: Yes (Hospitalization)
  Sender: FDA-Public Use
  Company Number: None

PATIENT
  Age: 79 Year
  Sex: Female

DRUGS (10)
  1. BENZONATATE CAP 200 MG [Concomitant]
  2. AZITHROMYCIN TAB 250 MG [Concomitant]
  3. DOXYCYCL HYC TAB 100 MG [Concomitant]
  4. GABAPENTIN CAP 300 MG [Concomitant]
  5. OMEPRAZOLE CAP 40 MG [Concomitant]
  6. PREDNISONE TAB 50 MG [Concomitant]
  7. ROSUVASTATIN TAB 5 MG [Concomitant]
  8. TASIGNA [Suspect]
     Active Substance: NILOTINIB
     Indication: CHRONIC MYELOID LEUKAEMIA
     Route: 048
     Dates: start: 20190301
  9. ISOSORB MONO TAB 30 MG ER [Concomitant]
  10. FAMOTIDINE TAB 20 MG [Concomitant]

REACTIONS (1)
  - Nasopharyngitis [None]
